FAERS Safety Report 11599508 (Version 1)
Quarter: 2015Q4

REPORT INFORMATION
  Report Type: Spontaneous
  Country: US (occurrence: US)
  Receive Date: 20151006
  Receipt Date: 20151006
  Transmission Date: 20160304
  Serious: Yes (Other)
  Sender: FDA-Public Use
  Company Number: US-CELGENE-USA-2015097056

PATIENT
  Sex: Male

DRUGS (4)
  1. THALOMID [Suspect]
     Active Substance: THALIDOMIDE
     Indication: LICHENIFICATION
     Route: 048
     Dates: start: 201305
  2. THALOMID [Suspect]
     Active Substance: THALIDOMIDE
     Dosage: 50-150 MG
     Route: 048
     Dates: start: 201312
  3. THALOMID [Suspect]
     Active Substance: THALIDOMIDE
     Route: 048
     Dates: start: 201509
  4. THALOMID [Suspect]
     Active Substance: THALIDOMIDE
     Dosage: 100-150 MG
     Route: 048
     Dates: start: 201306

REACTIONS (1)
  - Renal cancer [Unknown]
